FAERS Safety Report 6030104-1 (Version None)
Quarter: 2009Q1

REPORT INFORMATION
  Report Type: 
  Country: None (occurrence: None)
  Receive Date: 20090107
  Receipt Date: 20081007
  Transmission Date: 20090719
  Serious: No
  Sender: FDA-Public Use
  Company Number: US-BAYER-200814029BCC

PATIENT
  Sex: Female
  Weight: 54 kg

DRUGS (2)
  1. ALEVE [Suspect]
     Indication: MYALGIA
     Route: 048
  2. YAZ [Concomitant]

REACTIONS (2)
  - DYSGEUSIA [None]
  - FOREIGN BODY TRAUMA [None]
